FAERS Safety Report 10243138 (Version 1)
Quarter: 2014Q2

REPORT INFORMATION
  Report Type: Spontaneous
  Country: US (occurrence: None)
  Receive Date: 20140616
  Receipt Date: 20140616
  Transmission Date: 20141212
  Serious: Yes (Death)
  Sender: FDA-Public Use
  Company Number: 2014-US-007037

PATIENT
  Age: 64 Year
  Sex: Female

DRUGS (13)
  1. CLOZAPINE [Suspect]
     Route: 048
     Dates: start: 20121024
  2. MUCINEX (GUAIFENESIN) [Concomitant]
  3. TOPAMAX (TOPIRAMATE) [Concomitant]
  4. SPIRIVA [Concomitant]
  5. RISPERDAL [Concomitant]
  6. ADVAIR (FLUTICASONE PROPIONATE, SALMETEROL XINAFOATE) [Concomitant]
  7. FLONASE (FLUTICASONE PROPIONATE) [Concomitant]
  8. CELEXA (CITALOPRAM HYDROBROMIDE) [Concomitant]
  9. COGENTIN (BENZATROPINE MESILATE) [Concomitant]
  10. HYDROCODONE (HYDROCODONE BITARTRATE) [Concomitant]
  11. MILK OF MAGNESIA (MAGNESIUM HYDROXIDE) [Concomitant]
  12. TYLENOL (PARACETAMOL) [Concomitant]
  13. BOOST (BIOTIN, CARBOHYDRATES NOS, FATS NOS, MINERALS NOS, POTASSIUM, PROTEINS NOS, SODIUM, VITAMINS NOS) [Concomitant]

REACTIONS (1)
  - Lung neoplasm malignant [None]
